FAERS Safety Report 24750904 (Version 2)
Quarter: 2025Q1

REPORT INFORMATION
  Report Type: Spontaneous
  Country: US (occurrence: US)
  Receive Date: 20241219
  Receipt Date: 20250107
  Transmission Date: 20250408
  Serious: Yes (Other)
  Sender: GLAUKOS
  Company Number: US-GLK-002398

PATIENT
  Age: 84 Year
  Sex: Male

DRUGS (1)
  1. IDOSE TR [Suspect]
     Active Substance: TRAVOPROST
     Indication: Product used for unknown indication
     Dates: start: 20241114, end: 20241114

REACTIONS (2)
  - Device dislocation [Unknown]
  - Medical device removal [Unknown]

NARRATIVE: CASE EVENT DATE: 20241116
